FAERS Safety Report 7494902-X (Version None)
Quarter: 2011Q2

REPORT INFORMATION
  Report Type: 
  Country: None (occurrence: None)
  Receive Date: 20110520
  Receipt Date: 20110511
  Transmission Date: 20111010
  Serious: Yes (Hospitalization)
  Sender: FDA-Public Use
  Company Number: JP-BRISTOL-MYERS SQUIBB COMPANY-15755036

PATIENT
  Age: 78 Year
  Sex: Female

DRUGS (3)
  1. LIPIODOL [Concomitant]
     Route: 013
  2. DOXORUBICIN HYDROCHLORIDE [Suspect]
     Indication: HEPATIC NEOPLASM MALIGNANT RECURRENT
     Route: 013
  3. MITOMYCIN [Suspect]
     Indication: HEPATIC NEOPLASM MALIGNANT RECURRENT
     Route: 013

REACTIONS (1)
  - SKIN DISORDER [None]
